FAERS Safety Report 5834975-0 (Version None)
Quarter: 2008Q3

REPORT INFORMATION
  Report Type: 
  Country: None (occurrence: None)
  Receive Date: 20080806
  Receipt Date: 20080428
  Transmission Date: 20090109
  Serious: No
  Sender: FDA-Public Use
  Company Number: US-BAYER-200821405NA

PATIENT
  Age: 57 Year
  Sex: Male

DRUGS (3)
  1. LEVITRA [Suspect]
     Indication: ERECTILE DYSFUNCTION
     Dosage: TOTAL DAILY DOSE: 25 MG  UNIT DOSE: 20 MG
     Route: 048
     Dates: start: 20080423
  2. LEVITRA [Suspect]
     Dosage: TOTAL DAILY DOSE: 25 MG  UNIT DOSE: 20 MG
     Route: 048
     Dates: start: 20080413, end: 20080423
  3. LEVITRA [Suspect]
     Route: 048
     Dates: start: 20060101

REACTIONS (3)
  - ERECTION INCREASED [None]
  - HEADACHE [None]
  - MYALGIA [None]
